FAERS Safety Report 5328561-9 (Version None)
Quarter: 2007Q2

REPORT INFORMATION
  Report Type: 
  Country: None (occurrence: None)
  Receive Date: 20070518
  Receipt Date: 20070509
  Transmission Date: 20071010
  Serious: Yes (Other)
  Sender: FDA-Public Use
  Company Number: FR-AMGEN-UK224383

PATIENT

DRUGS (3)
  1. NEUPOGEN [Suspect]
     Indication: AGRANULOCYTOSIS
     Route: 065
  2. ANTITHYMOCYTE IMMUNOGLOBULIN [Concomitant]
     Route: 065
  3. CYCLOSPORINE [Concomitant]
     Route: 065

REACTIONS (3)
  - ACUTE MYELOID LEUKAEMIA [None]
  - APLASTIC ANAEMIA [None]
  - MYELODYSPLASTIC SYNDROME [None]
